FAERS Safety Report 5968715-1 (Version None)
Quarter: 2008Q4

REPORT INFORMATION
  Report Type: 
  Country: None (occurrence: None)
  Receive Date: 20081126
  Receipt Date: 20081121
  Transmission Date: 20090506
  Serious: Yes (Hospitalization)
  Sender: FDA-Public Use
  Company Number: A0758220A

PATIENT
  Age: 75 Year
  Sex: Male
  Weight: 86.6 kg

DRUGS (3)
  1. MELPHALAN [Suspect]
     Indication: AMYLOIDOSIS
     Dates: start: 20080821, end: 20081019
  2. VELCADE [Suspect]
     Indication: AMYLOIDOSIS
     Route: 042
     Dates: start: 20080821, end: 20081019
  3. DEXAMETHASONE 0.5MG TAB [Suspect]
     Indication: AMYLOIDOSIS
     Route: 048
     Dates: start: 20080821, end: 20081030

REACTIONS (5)
  - CONSTIPATION [None]
  - DYSURIA [None]
  - FLANK PAIN [None]
  - HERPES ZOSTER [None]
  - RASH [None]
